FAERS Safety Report 25366450 (Version 2)
Quarter: 2025Q2

REPORT INFORMATION
  Report Type: Spontaneous
  Country: IL (occurrence: IL)
  Receive Date: 20250528
  Receipt Date: 20250617
  Transmission Date: 20250717
  Serious: Yes (Hospitalization)
  Sender: CHEPLAPHARM
  Company Number: IL-CHEPLA-2025006526

PATIENT
  Age: 59 Year
  Sex: Female

DRUGS (9)
  1. QUETIAPINE [Suspect]
     Active Substance: QUETIAPINE
     Dosage: DAILY DOSE: 50 MILLIGRAM
     Dates: start: 20250402
  2. QUETIAPINE [Suspect]
     Active Substance: QUETIAPINE
     Dosage: 10 TABLETS (250 MG)?DAILY DOSE: 10 DOSAGE FORM
  3. QUETIAPINE [Suspect]
     Active Substance: QUETIAPINE
  4. Clonex [Concomitant]
     Indication: Schizophrenia
  5. Clonex [Concomitant]
     Indication: Anxiety
  6. Nocturno Forte [Concomitant]
     Indication: Anxiety
  7. Nocturno Forte [Concomitant]
     Indication: Schizophrenia
  8. Topitrim [Concomitant]
     Indication: Headache
  9. Alpralid [Concomitant]

REACTIONS (2)
  - Electrocardiogram QT prolonged [Unknown]
  - Overdose [Unknown]
